FAERS Safety Report 14232441 (Version 2)
Quarter: 2017Q4

REPORT INFORMATION
  Report Type: Spontaneous
  Country: ES (occurrence: ES)
  Receive Date: 20171128
  Receipt Date: 20171206
  Transmission Date: 20180321
  Serious: Yes (Other)
  Sender: FDA-Public Use
  Company Number: ES-PFIZER INC-2017508214

PATIENT
  Age: 72 Year
  Sex: Female

DRUGS (10)
  1. CYCLOPHOSPHAMIDE. [Concomitant]
     Active Substance: CYCLOPHOSPHAMIDE
     Indication: LUNG ADENOCARCINOMA STAGE IV
  2. RITUXIMAB. [Concomitant]
     Active Substance: RITUXIMAB
     Indication: NON-HODGKIN^S LYMPHOMA
     Dosage: UNK (8 CYCLES)
     Dates: start: 201506, end: 201512
  3. VINCRISTINE [Concomitant]
     Active Substance: VINCRISTINE
     Indication: NON-HODGKIN^S LYMPHOMA
     Dosage: UNK (8 CYCLES)
     Dates: start: 201506, end: 201512
  4. PREDNISONE. [Concomitant]
     Active Substance: PREDNISONE
     Indication: NON-HODGKIN^S LYMPHOMA
     Dosage: UNK (8 CYCLES)
     Dates: start: 201506, end: 201512
  5. DOXORUBICIN HCL [Suspect]
     Active Substance: DOXORUBICIN HYDROCHLORIDE
     Indication: LUNG ADENOCARCINOMA STAGE IV
  6. CYCLOPHOSPHAMIDE. [Concomitant]
     Active Substance: CYCLOPHOSPHAMIDE
     Indication: NON-HODGKIN^S LYMPHOMA
     Dosage: UNK (8 CYCLES)
     Dates: start: 201506, end: 201512
  7. RITUXIMAB. [Concomitant]
     Active Substance: RITUXIMAB
     Indication: LUNG ADENOCARCINOMA STAGE IV
  8. VINCRISTINE [Concomitant]
     Active Substance: VINCRISTINE
     Indication: LUNG ADENOCARCINOMA STAGE IV
  9. PREDNISONE. [Concomitant]
     Active Substance: PREDNISONE
     Indication: LUNG ADENOCARCINOMA STAGE IV
  10. DOXORUBICIN HCL [Suspect]
     Active Substance: DOXORUBICIN HYDROCHLORIDE
     Indication: NON-HODGKIN^S LYMPHOMA
     Dosage: UNK (8 CYCLES)
     Dates: start: 201506, end: 201512

REACTIONS (2)
  - Cardiotoxicity [Unknown]
  - Pulmonary oedema [Unknown]

NARRATIVE: CASE EVENT DATE: 201601
